FAERS Safety Report 15088460 (Version 1)
Quarter: 2018Q2

REPORT INFORMATION
  Report Type: Spontaneous
  Country: US (occurrence: US)
  Receive Date: 20180629
  Receipt Date: 20180629
  Transmission Date: 20180711
  Serious: Yes (Other)
  Sender: FDA-Public Use
  Company Number: US-ROCHE-2145642

PATIENT
  Sex: Male
  Weight: 99.43 kg

DRUGS (3)
  1. RITUXAN [Suspect]
     Active Substance: RITUXIMAB
     Indication: PEMPHIGOID
     Dosage: ONGOING: NO
     Route: 065
     Dates: end: 20180514
  2. MOTRIN [Concomitant]
     Active Substance: IBUPROFEN
     Route: 065
  3. TYLENOL [Concomitant]
     Active Substance: ACETAMINOPHEN
     Route: 065

REACTIONS (6)
  - Hypersomnia [Recovered/Resolved]
  - JC polyomavirus test positive [Not Recovered/Not Resolved]
  - Chills [Recovering/Resolving]
  - Arthralgia [Not Recovered/Not Resolved]
  - Asthenia [Not Recovered/Not Resolved]
  - Gait disturbance [Not Recovered/Not Resolved]
